FAERS Safety Report 4654704-6 (Version None)
Quarter: 2005Q2

REPORT INFORMATION
  Report Type: 
  Country: None (occurrence: None)
  Receive Date: 20050505
  Receipt Date: 20050505
  Transmission Date: 20051028
  Serious: Yes (Life-Threatening, Hospitalization, Disabling)
  Sender: FDA-Public Use
  Company Number: None

PATIENT
  Age: 51 Year
  Sex: Female
  Weight: 62.5964 kg

DRUGS (2)
  1. HUMIRA             NO LONGER HAVE INFO [Suspect]
     Indication: OSTEOARTHRITIS
     Dosage: INJECTION    CUTANEOUS
     Route: 003
     Dates: start: 20000105, end: 20031224
  2. HUMIRA             NO LONGER HAVE INFO [Suspect]
     Indication: RHEUMATOID ARTHRITIS
     Dosage: INJECTION    CUTANEOUS
     Route: 003
     Dates: start: 20000105, end: 20031224

REACTIONS (6)
  - BLOOD POTASSIUM DECREASED [None]
  - LYMPHOEDEMA [None]
  - NECROTISING FASCIITIS [None]
  - OEDEMA PERIPHERAL [None]
  - SKIN ULCER [None]
  - STREPTOCOCCAL INFECTION [None]
